FAERS Safety Report 6388441-7 (Version None)
Quarter: 2009Q4

REPORT INFORMATION
  Report Type: 
  Country: None (occurrence: None)
  Receive Date: 20091001
  Receipt Date: 20091001
  Transmission Date: 20100525
  Serious: Yes (Other)
  Sender: FDA-Public Use
  Company Number: None

PATIENT
  Age: 57 Year
  Sex: Male
  Weight: 85.2762 kg

DRUGS (1)
  1. TRAMADOL HCL [Suspect]
     Dosage: 50MG 2X A DAY PO
     Route: 048
     Dates: start: 20060101, end: 20080101

REACTIONS (1)
  - NEURALGIA [None]
